FAERS Safety Report 9552164 (Version 2)
Quarter: 2013Q4

REPORT INFORMATION
  Report Type: Spontaneous
  Country: BE (occurrence: BE)
  Receive Date: 20130925
  Receipt Date: 20131011
  Transmission Date: 20140711
  Serious: Yes (Hospitalization)
  Sender: FDA-Public Use
  Company Number: PHHY2013BE106375

PATIENT
  Sex: Female

DRUGS (11)
  1. ACLASTA [Suspect]
     Indication: OSTEOPOROSIS
     Dosage: 5 MG, YEARLY
     Route: 042
     Dates: start: 2008
  2. ACLASTA [Suspect]
     Dosage: 5 MG, YEARLY
     Route: 042
  3. ACLASTA [Suspect]
     Dosage: 5 MG, YEARLY
     Route: 042
  4. ACLASTA [Suspect]
     Dosage: 5 MG, YEARLY
     Route: 042
     Dates: start: 2011
  5. AREDIA [Suspect]
     Indication: OSTEOPOROSIS
     Dosage: 30 MG (EVERY 03 MONTH)
     Dates: start: 199709, end: 200212
  6. AREDIA [Suspect]
     Dosage: 60 MG, (EVERY 03 MONTH)
     Dates: start: 2003, end: 2006
  7. TILUDRONATE DISODIUM [Suspect]
     Indication: OSTEOPOROSIS
     Dosage: FOR 06 MONTHS (08 DAYS/MONTH)
     Dates: start: 1997, end: 1997
  8. CALCIUM [Concomitant]
     Indication: OSTEOPOROSIS
     Dosage: UNK UKN, UNK
     Dates: start: 1997
  9. VIT D [Concomitant]
     Indication: OSTEOPOROSIS
     Dosage: UNK UKN, UNK
     Dates: start: 1997
  10. EMCONCOR [Concomitant]
     Dosage: UNK UKN, UNK
  11. ASAFLOW [Concomitant]
     Dosage: UNK UKN, UNK

REACTIONS (6)
  - Atypical femur fracture [Recovered/Resolved]
  - Pain in extremity [Unknown]
  - Groin pain [Unknown]
  - Pathological fracture [Unknown]
  - Bone disorder [Unknown]
  - Fall [Unknown]
